FAERS Safety Report 16761111 (Version 1)
Quarter: 2019Q3

REPORT INFORMATION
  Report Type: Spontaneous
  Country: US (occurrence: US)
  Receive Date: 20190830
  Receipt Date: 20190830
  Transmission Date: 20191005
  Serious: Yes (Hospitalization)
  Sender: FDA-Public Use
  Company Number: US-ANIPHARMA-2018-US-020266

PATIENT
  Age: 39 Year
  Sex: Male
  Weight: 113 kg

DRUGS (1)
  1. ARIMIDEX [Suspect]
     Active Substance: ANASTROZOLE
     Indication: FERTILITY INCREASED
     Dosage: 1 PO EVERY OTHER DAY
     Route: 048
     Dates: start: 20181010, end: 20181126

REACTIONS (7)
  - Intentional product misuse [Recovered/Resolved]
  - Dyspnoea [Unknown]
  - Deep vein thrombosis [Unknown]
  - Oedema [Unknown]
  - Brain natriuretic peptide increased [Unknown]
  - Pulmonary embolism [Unknown]
  - Off label use [Recovered/Resolved]

NARRATIVE: CASE EVENT DATE: 20181010
